FAERS Safety Report 7339685-9 (Version None)
Quarter: 2011Q1

REPORT INFORMATION
  Report Type: 
  Country: None (occurrence: None)
  Receive Date: 20110303
  Receipt Date: 20110303
  Transmission Date: 20110831
  Serious: Yes (Other)
  Sender: FDA-Public Use
  Company Number: None

PATIENT
  Age: 53 Year
  Sex: Female
  Weight: 67.1324 kg

DRUGS (2)
  1. FOSAMAX [Suspect]
     Indication: HYPERSENSITIVITY
     Dosage: 70 MG WEEKLY
     Dates: start: 20101204
  2. FOSAMAX [Suspect]
     Indication: HYPERSENSITIVITY
     Dosage: 70 MG WEEKLY
     Dates: start: 20101211

REACTIONS (5)
  - OEDEMA PERIPHERAL [None]
  - ARTHRALGIA [None]
  - SWELLING FACE [None]
  - PAIN IN EXTREMITY [None]
  - MUSCULOSKELETAL STIFFNESS [None]
